FAERS Safety Report 24058992 (Version 1)
Quarter: 2024Q3

REPORT INFORMATION
  Report Type: Spontaneous
  Country: US (occurrence: US)
  Receive Date: 20240708
  Receipt Date: 20240708
  Transmission Date: 20241017
  Serious: No
  Sender: ALK-ABELLO
  Company Number: US-ALK-ABELLO A/S-2024AA002511

PATIENT

DRUGS (1)
  1. HISTAMINE PHOSPHATE [Suspect]
     Active Substance: HISTAMINE PHOSPHATE
     Indication: Skin test
     Route: 023

REACTIONS (4)
  - Contusion [Recovered/Resolved]
  - Scar [Recovered/Resolved]
  - Ulcer [Recovered/Resolved]
  - Skin wound [Recovered/Resolved]
